FAERS Safety Report 16439681 (Version 1)
Quarter: 2019Q2

REPORT INFORMATION
  Report Type: Spontaneous
  Country: US (occurrence: US)
  Receive Date: 20190617
  Receipt Date: 20190617
  Transmission Date: 20190711
  Serious: No
  Sender: FDA-Public Use
  Company Number: US-MYLANLABS-2019M1052180

PATIENT
  Sex: Female
  Weight: 68 kg

DRUGS (7)
  1. TUMS                               /00193601/ [Concomitant]
     Active Substance: CALCIUM CARBONATE\MAGNESIUM CARBONATE\MAGNESIUM TRISILICATE
     Indication: MINERAL SUPPLEMENTATION
     Dosage: 1 DOSAGE FORM, QD
  2. CENTRUM SILVER                     /02363801/ [Concomitant]
     Active Substance: MINERALS\VITAMINS
     Indication: VITAMIN SUPPLEMENTATION
     Dosage: 1 DOSAGE FORM, QD
  3. LEVOTHYROXINE. [Suspect]
     Active Substance: LEVOTHYROXINE
     Indication: THYROID HORMONE REPLACEMENT THERAPY
     Dosage: UNK
     Route: 065
  4. VITAMIN D2 [Concomitant]
     Active Substance: ERGOCALCIFEROL
     Indication: VITAMIN SUPPLEMENTATION
     Dosage: 1 DOSAGE FORM, QW
     Route: 048
  5. PROLIA [Concomitant]
     Active Substance: DENOSUMAB
     Indication: OSTEOPOROSIS
     Dosage: INJECTION TWICE A YEAR
     Dates: start: 201709
  6. EXEMESTANE. [Concomitant]
     Active Substance: EXEMESTANE
     Indication: ANTIOESTROGEN THERAPY
     Dosage: 25 MILLIGRAM, QD
     Route: 048
  7. SUMATRIPTAN. [Concomitant]
     Active Substance: SUMATRIPTAN
     Indication: MIGRAINE
     Dosage: 50 MILLIGRAM, PRN

REACTIONS (1)
  - Blood thyroid stimulating hormone increased [Recovered/Resolved]
